FAERS Safety Report 8067539-1 (Version None)
Quarter: 2012Q1

REPORT INFORMATION
  Report Type: 
  Country: None (occurrence: None)
  Receive Date: 20120124
  Receipt Date: 20120116
  Transmission Date: 20120608
  Serious: Yes (Hospitalization)
  Sender: FDA-Public Use
  Company Number: SE-ASTRAZENECA-2012SE03113

PATIENT
  Age: 80 Year
  Sex: Female

DRUGS (11)
  1. SYMBICORT [Concomitant]
     Route: 055
  2. SINGULAIR [Concomitant]
  3. SALURES [Concomitant]
  4. ATACAND [Suspect]
     Indication: ESSENTIAL HYPERTENSION
     Route: 048
  5. PULMICORT [Concomitant]
  6. PROPAVAN [Concomitant]
  7. PLENDIL [Concomitant]
  8. ACETAMINOPHEN [Concomitant]
  9. ATACAND [Suspect]
     Dosage: HALF DOSE OF ATACAND
     Route: 048
  10. EZETIMIBE [Concomitant]
  11. ASPIRIN [Concomitant]

REACTIONS (1)
  - ORTHOSTATIC HYPOTENSION [None]
